FAERS Safety Report 5052040-X (Version None)
Quarter: 2006Q3

REPORT INFORMATION
  Report Type: 
  Country: None (occurrence: None)
  Receive Date: 20060711
  Receipt Date: 20060626
  Transmission Date: 20061208
  Serious: Yes (Death)
  Sender: FDA-Public Use
  Company Number: 151-20785-06070095

PATIENT
  Age: 76 Year
  Sex: Male

DRUGS (4)
  1. THALOMID [Suspect]
     Indication: MULTIPLE MYELOMA
     Dosage: 200 MG, QD; ORAL
     Route: 048
     Dates: start: 20031208, end: 20060201
  2. ACETAMINOPHEN [Concomitant]
  3. ALLOPURINOL [Concomitant]
  4. ZELMAC (TEGASEROD) [Concomitant]

REACTIONS (2)
  - DISEASE PROGRESSION [None]
  - RENAL FAILURE [None]
